FAERS Safety Report 5525542-7 (Version None)
Quarter: 2007Q4

REPORT INFORMATION
  Report Type: 
  Country: None (occurrence: None)
  Receive Date: 20071126
  Receipt Date: 20071116
  Transmission Date: 20080405
  Serious: Yes (Hospitalization)
  Sender: FDA-Public Use
  Company Number: B0423888A

PATIENT
  Age: 35 Year
  Sex: Female

DRUGS (7)
  1. PAXIL [Suspect]
     Indication: DEPRESSION
     Route: 048
     Dates: start: 20050101, end: 20070405
  2. SEROQUEL [Suspect]
     Indication: DEPRESSION
     Route: 048
     Dates: start: 20050101, end: 20070405
  3. AMOBAN [Concomitant]
     Indication: DEPRESSION
     Dosage: 10MG PER DAY
     Route: 048
     Dates: start: 20050101
  4. ROHYPNOL [Concomitant]
     Indication: DEPRESSION
     Dosage: 4MG PER DAY
     Route: 065
     Dates: start: 20050101
  5. DEPAS [Concomitant]
     Indication: DEPRESSION
     Dosage: 9MG PER DAY
     Route: 048
     Dates: start: 20050101, end: 20060505
  6. SILECE [Concomitant]
     Indication: INSOMNIA
     Dosage: 4MG PER DAY
     Route: 048
     Dates: start: 19990101
  7. NAUZELIN [Concomitant]
     Indication: NAUSEA
     Route: 048
     Dates: end: 20070405

REACTIONS (15)
  - ANXIETY [None]
  - BLOOD CREATINE PHOSPHOKINASE INCREASED [None]
  - DIPLOPIA [None]
  - DRUG WITHDRAWAL SYNDROME [None]
  - FACIAL SPASM [None]
  - HYPERHIDROSIS [None]
  - HYPERTONIA [None]
  - IRRITABILITY [None]
  - MUSCLE TIGHTNESS [None]
  - MUSCLE TWITCHING [None]
  - MUSCULOSKELETAL STIFFNESS [None]
  - MYALGIA [None]
  - NAUSEA [None]
  - RHABDOMYOLYSIS [None]
  - TREMOR [None]
